FAERS Safety Report 22121942 (Version 1)
Quarter: 2023Q1

REPORT INFORMATION
  Report Type: Spontaneous
  Country: US (occurrence: US)
  Receive Date: 20230321
  Receipt Date: 20230321
  Transmission Date: 20230417
  Serious: No
  Sender: FDA-Public Use
  Company Number: US-BIOVITRUM-2023-US-006113

PATIENT
  Age: 49 Year
  Sex: Female

DRUGS (2)
  1. KINERET [Suspect]
     Active Substance: ANAKINRA
     Indication: Rheumatoid arthritis
     Route: 058
     Dates: start: 20190321
  2. KINERET [Suspect]
     Active Substance: ANAKINRA
     Indication: Still^s disease

REACTIONS (5)
  - Malaise [Unknown]
  - Pain [Unknown]
  - Intentional dose omission [Unknown]
  - Intentional product misuse [Not Recovered/Not Resolved]
  - Illness [Unknown]

NARRATIVE: CASE EVENT DATE: 20190521
